FAERS Safety Report 9766625 (Version 1)
Quarter: 2013Q4

REPORT INFORMATION
  Report Type: Spontaneous
  Country: US (occurrence: US)
  Receive Date: 20131217
  Receipt Date: 20131217
  Transmission Date: 20140711
  Serious: No
  Sender: FDA-Public Use
  Company Number: US-GLAXOSMITHKLINE-A1029297A

PATIENT
  Age: 62 Year
  Sex: Male
  Weight: 56.4 kg

DRUGS (1)
  1. VOTRIENT [Suspect]
     Indication: RENAL CANCER
     Dosage: 800MG PER DAY
     Route: 048
     Dates: start: 20130601, end: 20130620

REACTIONS (3)
  - Nausea [Recovered/Resolved]
  - Incoherent [Recovered/Resolved]
  - Dehydration [Recovered/Resolved]
